FAERS Safety Report 6001461-7 (Version None)
Quarter: 2008Q4

REPORT INFORMATION
  Report Type: 
  Country: None (occurrence: None)
  Receive Date: 20081215
  Receipt Date: 20071116
  Transmission Date: 20090506
  Serious: No
  Sender: FDA-Public Use
  Company Number: US-AMGEN-KDL251377

PATIENT
  Sex: Female

DRUGS (1)
  1. ENBREL [Suspect]
     Indication: ANKYLOSING SPONDYLITIS
     Route: 058
     Dates: start: 20061018

REACTIONS (4)
  - ABNORMAL SENSATION IN EYE [None]
  - PHOTOPSIA [None]
  - RASH ERYTHEMATOUS [None]
  - RASH PRURITIC [None]
